FAERS Safety Report 8103019-2 (Version None)
Quarter: 2012Q1

REPORT INFORMATION
  Report Type: 
  Country: None (occurrence: None)
  Receive Date: 20120201
  Receipt Date: 20120201
  Transmission Date: 20120608
  Serious: Yes (Hospitalization)
  Sender: FDA-Public Use
  Company Number: None

PATIENT
  Age: 49 Year
  Sex: Male
  Weight: 76 kg

DRUGS (3)
  1. RIBAVIRIN [Concomitant]
  2. INFERGEN [Concomitant]
  3. TELAPRAVIR [Suspect]
     Indication: HEPATITIS C
     Dosage: 750 MG
     Route: 048
     Dates: start: 20111201, end: 20120122

REACTIONS (1)
  - RASH [None]
